FAERS Safety Report 8341859-5 (Version None)
Quarter: 2012Q2

REPORT INFORMATION
  Report Type: 
  Country: None (occurrence: None)
  Receive Date: 20120503
  Receipt Date: 20120418
  Transmission Date: 20120825
  Serious: Yes (Other)
  Sender: FDA-Public Use
  Company Number: JPI-P-020985

PATIENT
  Age: 32 Year
  Sex: Female
  Weight: 35.8342 kg

DRUGS (9)
  1. XYREM [Suspect]
     Indication: MYOCLONUS
     Dosage: 4.5 GM (2.25 GM, 2 IN 1 D), ORAL, 3 GM (1 GM, 3 IN 1 D), ORAL, (1.5 GM BFAST/1GM LUNCH/1.5 GM DINNER
     Route: 048
     Dates: start: 20120403, end: 20120403
  2. XYREM [Suspect]
     Indication: MYOCLONUS
     Dosage: 4.5 GM (2.25 GM, 2 IN 1 D), ORAL, 3 GM (1 GM, 3 IN 1 D), ORAL, (1.5 GM BFAST/1GM LUNCH/1.5 GM DINNER
     Route: 048
     Dates: start: 20120405, end: 20120408
  3. XYREM [Suspect]
     Indication: MYOCLONUS
     Dosage: 4.5 GM (2.25 GM, 2 IN 1 D), ORAL, 3 GM (1 GM, 3 IN 1 D), ORAL, (1.5 GM BFAST/1GM LUNCH/1.5 GM DINNER
     Route: 048
     Dates: start: 20120401
  4. XYREM [Suspect]
     Indication: MYOCLONUS
     Dosage: 4.5 GM (2.25 GM, 2 IN 1 D), ORAL, 3 GM (1 GM, 3 IN 1 D), ORAL, (1.5 GM BFAST/1GM LUNCH/1.5 GM DINNER
     Route: 048
     Dates: start: 20120409, end: 20120401
  5. PREGABALIN [Concomitant]
  6. LEVETIRACETAM [Concomitant]
  7. ROPINIROLE [Concomitant]
  8. METOCARBAMOLE [Concomitant]
  9. CITALOPRAM HYDROBROMIDE [Concomitant]

REACTIONS (3)
  - MYOCLONUS [None]
  - CONDITION AGGRAVATED [None]
  - CONVULSION [None]
